FAERS Safety Report 9128001 (Version 1)
Quarter: 2013Q1

REPORT INFORMATION
  Report Type: Spontaneous
  Country: US (occurrence: US)
  Receive Date: 20130125
  Receipt Date: 20130125
  Transmission Date: 20140127
  Serious: Yes (Death)
  Sender: FDA-Public Use
  Company Number: PHHY2013US006786

PATIENT
  Age: 70 Year
  Sex: Male

DRUGS (5)
  1. METFORMIN [Suspect]
  2. METOPROLOL [Suspect]
  3. GLIPIZIDE [Suspect]
  4. ZOLPIDEM [Suspect]
  5. ACETAMINOPHEN W/HYDROCODONE [Suspect]

REACTIONS (1)
  - Completed suicide [Fatal]
